FAERS Safety Report 8042656-0 (Version None)
Quarter: 2012Q1

REPORT INFORMATION
  Report Type: 
  Country: None (occurrence: None)
  Receive Date: 20120112
  Receipt Date: 20120105
  Transmission Date: 20120608
  Serious: Yes (Hospitalization, Other)
  Sender: FDA-Public Use
  Company Number: US-MERCK-1112USA01238

PATIENT
  Age: 71 Year
  Sex: Female

DRUGS (7)
  1. PANTOPRAZOLE [Concomitant]
     Indication: GASTRIC DISORDER
     Route: 048
  2. FEXOFENADINE HYDROCHLORIDE [Concomitant]
     Indication: SINUS DISORDER
     Route: 048
     Dates: start: 20000101
  3. LEVOTHROID [Concomitant]
     Indication: THYROID DISORDER
     Route: 048
     Dates: start: 20000101
  4. FOSAMAX [Suspect]
     Indication: OSTEOPOROSIS
     Route: 048
     Dates: start: 20010701, end: 20080129
  5. NEUROTIN (ACETYLCARNITINE HYDROCHLORIDE) [Concomitant]
     Indication: RESTLESS LEGS SYNDROME
     Route: 048
     Dates: start: 20000101
  6. SINGULAIR [Concomitant]
     Indication: HYPERSENSITIVITY
     Route: 048
     Dates: start: 20000101
  7. [THERAPY UNSPECIFIED] [Concomitant]
     Indication: BLOOD PRESSURE
     Route: 048
     Dates: start: 20000101

REACTIONS (2)
  - FEMUR FRACTURE [None]
  - PLATELET DISORDER [None]
